FAERS Safety Report 7437522-5 (Version None)
Quarter: 2011Q2

REPORT INFORMATION
  Report Type: 
  Country: None (occurrence: None)
  Receive Date: 20110426
  Receipt Date: 20110421
  Transmission Date: 20111010
  Serious: Yes (Other)
  Sender: FDA-Public Use
  Company Number: US-PFIZER INC-2011087770

PATIENT
  Age: 45 Year
  Sex: Female

DRUGS (1)
  1. GEODON [Suspect]
     Dosage: 80 MG AT BEDTIME

REACTIONS (1)
  - ECHOLALIA [None]
